FAERS Safety Report 7340022-4 (Version None)
Quarter: 2011Q1

REPORT INFORMATION
  Report Type: 
  Country: None (occurrence: None)
  Receive Date: 20110228
  Receipt Date: 20110216
  Transmission Date: 20110831
  Serious: Yes (Hospitalization, Other)
  Sender: FDA-Public Use
  Company Number: 1000018954

PATIENT
  Sex: Female

DRUGS (1)
  1. LEXAPRO [Suspect]
     Dosage: ORAL
     Route: 048

REACTIONS (1)
  - NEUTROPENIA [None]
